FAERS Safety Report 10570828 (Version 1)
Quarter: 2014Q4

REPORT INFORMATION
  Report Type: Spontaneous
  Country: US (occurrence: None)
  Receive Date: 20141106
  Receipt Date: 20141106
  Transmission Date: 20150529
  Serious: Yes (Hospitalization)
  Sender: FDA-Public Use
  Company Number: None

PATIENT
  Age: 60 Year
  Sex: Male
  Weight: 71.5 kg

DRUGS (14)
  1. SPIRONOLACTONE. [Concomitant]
     Active Substance: SPIRONOLACTONE
  2. TYVASO [Concomitant]
     Active Substance: TREPROSTINIL
  3. SOFOSBUVIR [Suspect]
     Active Substance: SOFOSBUVIR
     Indication: HEPATITIS C
     Dosage: 400 1X DAILY ORAL
     Route: 048
     Dates: start: 20140826
  4. PEPCID [Concomitant]
     Active Substance: FAMOTIDINE
  5. DERMA SMOOTHE [Concomitant]
  6. FUROSEMID [Concomitant]
     Active Substance: FUROSEMIDE
  7. NADOLOL. [Concomitant]
     Active Substance: NADOLOL
  8. SIMEPREVIR [Suspect]
     Active Substance: SIMEPREVIR
     Indication: HEPATITIS C
     Dosage: 150 1X DAILY ORAL
     Route: 048
     Dates: start: 20140826
  9. RIFAXIMIN [Concomitant]
     Active Substance: RIFAXIMIN
  10. BETAMETHASONE [Concomitant]
     Active Substance: BETAMETHASONE
  11. CALCIPOTRIENE. [Concomitant]
     Active Substance: CALCIPOTRIENE
  12. LACTULOSE. [Concomitant]
     Active Substance: LACTULOSE
  13. SILDENAFIL. [Concomitant]
     Active Substance: SILDENAFIL
  14. VITAMIN C WITH POTASSIUM [Concomitant]

REACTIONS (4)
  - Femoral neck fracture [None]
  - Blood bilirubin increased [None]
  - Haemorrhagic anaemia [None]
  - Fall [None]

NARRATIVE: CASE EVENT DATE: 20140827
